FAERS Safety Report 8345839-5 (Version None)
Quarter: 2012Q2

REPORT INFORMATION
  Report Type: 
  Country: None (occurrence: None)
  Receive Date: 20120509
  Receipt Date: 20120430
  Transmission Date: 20120825
  Serious: Yes (Hospitalization)
  Sender: FDA-Public Use
  Company Number: US-BIOGENIDEC-2012BI015577

PATIENT
  Age: 50 Year
  Sex: Male

DRUGS (1)
  1. TYSABRI [Suspect]
     Indication: MULTIPLE SCLEROSIS
     Route: 042
     Dates: start: 20110811, end: 20120301

REACTIONS (12)
  - LOCAL SWELLING [None]
  - NECK PAIN [None]
  - GINGIVAL SWELLING [None]
  - EYE SWELLING [None]
  - NASAL DISORDER [None]
  - GINGIVAL INFECTION [None]
  - LIP SWELLING [None]
  - TOOTH FRACTURE [None]
  - PAIN IN JAW [None]
  - SWELLING [None]
  - PROCEDURAL PAIN [None]
  - POST PROCEDURAL COMPLICATION [None]
